FAERS Safety Report 15114494 (Version 2)
Quarter: 2018Q3

REPORT INFORMATION
  Report Type: Spontaneous
  Country: JP (occurrence: JP)
  Receive Date: 20180706
  Receipt Date: 20180712
  Transmission Date: 20181010
  Serious: Yes (Life-Threatening, Hospitalization)
  Sender: FDA-Public Use
  Company Number: JP-MYLANLABS-2018M1049168

PATIENT
  Age: 63 Year
  Sex: Male

DRUGS (6)
  1. ZOLPIDEM [Suspect]
     Active Substance: ZOLPIDEM\ZOLPIDEM TARTRATE
     Indication: PRODUCT USED FOR UNKNOWN INDICATION
     Route: 065
  2. DONEPEZIL. [Suspect]
     Active Substance: DONEPEZIL
     Indication: PRODUCT USED FOR UNKNOWN INDICATION
     Route: 065
  3. ARIPIPRAZOLE. [Suspect]
     Active Substance: ARIPIPRAZOLE
     Indication: PRODUCT USED FOR UNKNOWN INDICATION
     Route: 065
  4. LAMOTRIGINE. [Suspect]
     Active Substance: LAMOTRIGINE
     Indication: PRODUCT USED FOR UNKNOWN INDICATION
     Route: 065
  5. LITHIUM. [Suspect]
     Active Substance: LITHIUM
     Indication: PRODUCT USED FOR UNKNOWN INDICATION
     Route: 065
  6. ETIZOLAM [Suspect]
     Active Substance: ETIZOLAM
     Indication: PRODUCT USED FOR UNKNOWN INDICATION
     Route: 065

REACTIONS (18)
  - Hypotension [Unknown]
  - Hepatic function abnormal [Unknown]
  - Intentional overdose [Recovering/Resolving]
  - Respiratory acidosis [Unknown]
  - Leukocytosis [Unknown]
  - Leukoencephalopathy [Recovering/Resolving]
  - Depressive symptom [Unknown]
  - Tachycardia [Unknown]
  - Suicidal ideation [Unknown]
  - Anaemia [Unknown]
  - Coma [Recovered/Resolved]
  - Tachypnoea [Unknown]
  - Hypokalaemia [Unknown]
  - Suicide attempt [Recovering/Resolving]
  - Hypoxia [Unknown]
  - Blood creatine phosphokinase increased [Unknown]
  - Renal failure [Unknown]
  - Drug ineffective [Unknown]
